FAERS Safety Report 15629553 (Version 1)
Quarter: 2018Q4

REPORT INFORMATION
  Report Type: Spontaneous
  Country: US (occurrence: US)
  Receive Date: 20181117
  Receipt Date: 20181117
  Transmission Date: 20190205
  Serious: No
  Sender: FDA-Public Use
  Company Number: US-009507513-1811USA005947

PATIENT
  Age: 45 Year
  Sex: Female

DRUGS (6)
  1. GANIRELIX ACETATE. [Suspect]
     Active Substance: GANIRELIX ACETATE
     Indication: INFERTILITY FEMALE
     Dosage: 83 MICROGRAM, PRN
     Route: 058
     Dates: start: 20180417
  2. LEUPROLIDE [Concomitant]
     Active Substance: LEUPROLIDE
  3. FENTANYL. [Concomitant]
     Active Substance: FENTANYL
  4. INDOMETHACIN. [Concomitant]
     Active Substance: INDOMETHACIN
  5. FOLLISTIM AQ [Suspect]
     Active Substance: FOLLITROPIN
     Indication: INFERTILITY FEMALE
     Dosage: 150 U, QD
     Route: 058
     Dates: start: 20180417
  6. CLOMIPHENE CITRATE. [Concomitant]
     Active Substance: CLOMIPHENE CITRATE

REACTIONS (1)
  - Abdominal distension [Not Recovered/Not Resolved]

NARRATIVE: CASE EVENT DATE: 201809
